FAERS Safety Report 13027177 (Version 1)
Quarter: 2016Q4

REPORT INFORMATION
  Report Type: Spontaneous
  Country: US (occurrence: US)
  Receive Date: 20161214
  Receipt Date: 20161214
  Transmission Date: 20170207
  Serious: Yes (Other)
  Sender: FDA-Public Use
  Company Number: US-JNJFOC-20161208809

PATIENT
  Age: 55 Year
  Sex: Male
  Weight: 136.08 kg

DRUGS (1)
  1. XARELTO [Suspect]
     Active Substance: RIVAROXABAN
     Indication: ANTIPHOSPHOLIPID SYNDROME
     Route: 048
     Dates: start: 201509

REACTIONS (3)
  - Off label use [Unknown]
  - Product use issue [Unknown]
  - Impaired healing [Unknown]

NARRATIVE: CASE EVENT DATE: 201509
